FAERS Safety Report 5852590-X (Version None)
Quarter: 2008Q3

REPORT INFORMATION
  Report Type: 
  Country: None (occurrence: None)
  Receive Date: 20080820
  Receipt Date: 20080820
  Transmission Date: 20090109
  Serious: Yes (Hospitalization)
  Sender: FDA-Public Use
  Company Number: None

PATIENT
  Age: 58 Year
  Sex: Male
  Weight: 84 kg

DRUGS (1)
  1. IODIXANOL [Suspect]
     Dosage: 65 ML ONCE IV
     Route: 042
     Dates: start: 20080708, end: 20080708

REACTIONS (4)
  - CONTRAST MEDIA REACTION [None]
  - COUGH [None]
  - THROAT IRRITATION [None]
  - WHEEZING [None]
